FAERS Safety Report 4343471-1 (Version None)
Quarter: 2004Q2

REPORT INFORMATION
  Report Type: 
  Country: None (occurrence: None)
  Receive Date: 20040412
  Receipt Date: 20040329
  Transmission Date: 20050107
  Serious: Yes (Other)
  Sender: FDA-Public Use
  Company Number: DE-JNJFOC-20040104735

PATIENT
  Age: 75 Year
  Sex: Female
  Weight: 64.3 kg

DRUGS (14)
  1. RISPERDAL [Suspect]
     Indication: HALLUCINATION
     Dosage: 1 MG, IN 1 DAY, ORAL
     Route: 048
     Dates: start: 20040115, end: 20040219
  2. RISPERDAL [Suspect]
     Indication: RESTLESSNESS
     Dosage: 1 MG, IN 1 DAY, ORAL
     Route: 048
     Dates: start: 20040115, end: 20040219
  3. DIPIPERON (PIPAMPERONE) UNSPECIFIED [Suspect]
     Indication: AGITATION
     Dosage: 40 MG, ORAL
     Route: 048
     Dates: start: 20040115, end: 20040219
  4. DIPIPERON (PIPAMPERONE) UNSPECIFIED [Suspect]
     Indication: RESTLESSNESS
     Dosage: 40 MG, ORAL
     Route: 048
     Dates: start: 20040115, end: 20040219
  5. BELOC ZOK (METOPROLOL SUCCINATE) TABLETS [Suspect]
     Indication: DRUG USE FOR UNKNOWN INDICATION
     Dosage: 1 DOSE (S), IN 1 DAY, ORAL
     Route: 048
  6. LORAZEPAM [Concomitant]
  7. AMINEURIN (AMITRIPTYLINE HYDROCHLORIDE) [Concomitant]
  8. ACETYLSALICYLIC ACID SRT [Concomitant]
  9. ANTIHYPERTENSIVE (ANTIHYPERTENSIVES) [Concomitant]
  10. ZOLOFT [Concomitant]
  11. OMEPRAZOLE [Concomitant]
  12. VOLTAREN [Concomitant]
  13. DYAZIDE [Concomitant]
  14. AMARYL [Concomitant]

REACTIONS (3)
  - ASPARTATE AMINOTRANSFERASE INCREASED [None]
  - ELECTROCARDIOGRAM QT CORRECTED INTERVAL PROLONGED [None]
  - GAMMA-GLUTAMYLTRANSFERASE INCREASED [None]
